FAERS Safety Report 8292216-1 (Version None)
Quarter: 2012Q2

REPORT INFORMATION
  Report Type: 
  Country: None (occurrence: None)
  Receive Date: 20120417
  Receipt Date: 20120411
  Transmission Date: 20120825
  Serious: Yes (Hospitalization, Other)
  Sender: FDA-Public Use
  Company Number: US-ELI_LILLY_AND_COMPANY-US201204003815

PATIENT
  Sex: Male

DRUGS (4)
  1. LISINOPRIL AND HYDROCHLOROTHIAZIDE [Concomitant]
     Dosage: 20MG LISINOPRIL / 12.5MG HYDROCHLOROTHIAZIDE, QD
  2. ASPIRIN [Concomitant]
     Dosage: 325 MG, QD
  3. VITAMIN D [Concomitant]
     Dosage: 50000 IU, MONTHLY (1/M)
     Route: 048
  4. FORTEO [Suspect]
     Indication: OSTEOPOROSIS
     Dosage: 20 UG, QD
     Dates: start: 20120221

REACTIONS (4)
  - MUSCULOSKELETAL DISORDER [None]
  - FALL [None]
  - PELVIC FRACTURE [None]
  - GAIT DISTURBANCE [None]
